FAERS Safety Report 4685847-9 (Version None)
Quarter: 2005Q2

REPORT INFORMATION
  Report Type: 
  Country: None (occurrence: None)
  Receive Date: 20050606
  Receipt Date: 20050606
  Transmission Date: 20051028
  Serious: Yes (Other)
  Sender: FDA-Public Use
  Company Number: None

PATIENT
  Sex: Female
  Weight: 23.587 kg

DRUGS (4)
  1. RID [Suspect]
     Indication: LICE INFESTATION
     Dosage: HEAD TREATMENTS OFF AND ON ABOUT EVERY OTHER WEEK SINCE AUGUST 2004
     Dates: start: 20040801, end: 20050401
  2. VINEGAR [Concomitant]
  3. TEA TREE OIL [Concomitant]
  4. T-GEL SHAMPOO [Concomitant]

REACTIONS (4)
  - HEADACHE [None]
  - LYMPH NODE PAIN [None]
  - LYMPHADENOPATHY [None]
  - PYREXIA [None]
